FAERS Safety Report 9495671 (Version 3)
Quarter: 2013Q3

REPORT INFORMATION
  Report Type: Spontaneous
  Country: PT (occurrence: PT)
  Receive Date: 20130903
  Receipt Date: 20130925
  Transmission Date: 20140515
  Serious: Yes (Death, Hospitalization, Other)
  Sender: FDA-Public Use
  Company Number: PT-BRISTOL-MYERS SQUIBB COMPANY-19037357

PATIENT
  Age: 56 Year
  Sex: Male

DRUGS (1)
  1. IPILIMUMAB [Suspect]
     Indication: METASTATIC MALIGNANT MELANOMA
     Dosage: 4 INFUSIONS OF IPILIMUMAB
     Dates: start: 20130516, end: 20130720

REACTIONS (3)
  - Death [Fatal]
  - Colitis [Recovering/Resolving]
  - Diverticulitis [Recovering/Resolving]
